FAERS Safety Report 7337442-0 (Version None)
Quarter: 2011Q1

REPORT INFORMATION
  Report Type: 
  Country: None (occurrence: None)
  Receive Date: 20110222
  Receipt Date: 20110204
  Transmission Date: 20110831
  Serious: Yes (Hospitalization)
  Sender: FDA-Public Use
  Company Number: AUR-APL-2011-00435

PATIENT
  Age: 52 Year
  Sex: Male

DRUGS (5)
  1. SIMVASTATIN [Suspect]
     Dosage: 40MG-DAILY-ORAL
     Route: 048
  2. FLOXACILLIN SODIUM [Concomitant]
  3. AMLODIPINE [Concomitant]
  4. FUSIDIC ACID [Suspect]
     Indication: OSTEOMYELITIS
     Dosage: 500MG-TID-ORAL
     Route: 048
  5. HUMALOG [Concomitant]

REACTIONS (7)
  - RHABDOMYOLYSIS [None]
  - GUILLAIN-BARRE SYNDROME [None]
  - RENAL FAILURE ACUTE [None]
  - QUADRIPARESIS [None]
  - GLYCOSYLATED HAEMOGLOBIN INCREASED [None]
  - RESPIRATORY FAILURE [None]
  - HAEMODIALYSIS [None]
